FAERS Safety Report 7225199 (Version 4)
Quarter: 2016Q1

REPORT INFORMATION
  Report Type: Spontaneous
  Country: US (occurrence: US)
  Receive Date: 20091221
  Receipt Date: 20160128
  Transmission Date: 20160526
  Serious: Yes (Other)
  Sender: FDA-Public Use
  Company Number: US-ASTRAZENECA-2009SE09600

PATIENT
  Age: 64 Year
  Sex: Female

DRUGS (11)
  1. LOVAZA [Suspect]
     Active Substance: OMEGA-3-ACID ETHYL ESTERS
     Indication: BLOOD TRIGLYCERIDES INCREASED
     Route: 048
  2. VITAMIN C [Concomitant]
     Active Substance: ASCORBIC ACID
  3. LISINOPRIL. [Concomitant]
     Active Substance: LISINOPRIL
  4. LOPRESSOR [Concomitant]
     Active Substance: METOPROLOL TARTRATE
  5. BABY ASPIRIN [Concomitant]
     Active Substance: ASPIRIN
  6. METFORMIN [Concomitant]
     Active Substance: METFORMIN HYDROCHLORIDE
  7. CLARITIN [Concomitant]
     Active Substance: LORATADINE
  8. FLUTICASONE [Concomitant]
     Active Substance: FLUTICASONE\FLUTICASONE PROPIONATE
  9. HYDROCHLOROTHIAZIDE. [Concomitant]
     Active Substance: HYDROCHLOROTHIAZIDE
  10. CRESTOR [Suspect]
     Active Substance: ROSUVASTATIN CALCIUM
     Indication: BLOOD CHOLESTEROL ABNORMAL
     Route: 048
     Dates: start: 2005
  11. GLIMEPIRIDE. [Concomitant]
     Active Substance: GLIMEPIRIDE

REACTIONS (19)
  - Mobility decreased [Unknown]
  - Madarosis [Unknown]
  - Nausea [Unknown]
  - Drug hypersensitivity [Unknown]
  - Gastric disorder [Unknown]
  - Headache [Unknown]
  - Nail discolouration [Unknown]
  - Infection [Unknown]
  - Muscle spasms [Unknown]
  - Tonsillitis [Unknown]
  - Night sweats [Unknown]
  - Myalgia [Unknown]
  - Lymphoma [Unknown]
  - Influenza like illness [Unknown]
  - Myalgia [Unknown]
  - Insomnia [Unknown]
  - Cholelithiasis [Unknown]
  - Weight decreased [Unknown]
  - Adverse event [Unknown]

NARRATIVE: CASE EVENT DATE: 2005
